FAERS Safety Report 23896552 (Version 2)
Quarter: 2024Q4

REPORT INFORMATION
  Report Type: Spontaneous
  Country: CA (occurrence: CA)
  Receive Date: 20240524
  Receipt Date: 20241016
  Transmission Date: 20250114
  Serious: Yes (Other)
  Sender: ROCHE
  Company Number: CA-ROCHE-3562846

PATIENT
  Age: 65 Year
  Sex: Female
  Weight: 59.0 kg

DRUGS (10)
  1. ACTEMRA [Suspect]
     Active Substance: TOCILIZUMAB
     Indication: Rheumatoid arthritis
     Route: 065
  2. FELODIPINE [Suspect]
     Active Substance: FELODIPINE
     Indication: Blood pressure measurement
     Route: 065
  3. ADVAIR HFA [Concomitant]
     Active Substance: FLUTICASONE PROPIONATE\SALMETEROL XINAFOATE
  4. METHOTREXATE [Concomitant]
     Active Substance: METHOTREXATE
  5. NORTRIPTYLINE [Concomitant]
     Active Substance: NORTRIPTYLINE
  6. PAROXETINE [Concomitant]
     Active Substance: PAROXETINE
  7. QUINAPRIL [Concomitant]
     Active Substance: QUINAPRIL
  8. ROPINIROLE [Concomitant]
     Active Substance: ROPINIROLE
  9. TYLENOL [Concomitant]
     Active Substance: ACETAMINOPHEN
  10. VENLAFAXINE HYDROCHLORIDE [Concomitant]
     Active Substance: VENLAFAXINE HYDROCHLORIDE

REACTIONS (33)
  - Abdominal discomfort [Not Recovered/Not Resolved]
  - Arthritis [Not Recovered/Not Resolved]
  - Blood pressure diastolic increased [Not Recovered/Not Resolved]
  - Blood pressure increased [Not Recovered/Not Resolved]
  - Chest discomfort [Not Recovered/Not Resolved]
  - Diarrhoea [Not Recovered/Not Resolved]
  - Fatigue [Not Recovered/Not Resolved]
  - Gastrointestinal disorder [Not Recovered/Not Resolved]
  - Headache [Not Recovered/Not Resolved]
  - Heart rate decreased [Not Recovered/Not Resolved]
  - Hypotension [Not Recovered/Not Resolved]
  - Infusion related reaction [Not Recovered/Not Resolved]
  - Peripheral swelling [Not Recovered/Not Resolved]
  - Pneumonia [Not Recovered/Not Resolved]
  - Sputum discoloured [Not Recovered/Not Resolved]
  - Synovial cyst [Not Recovered/Not Resolved]
  - Tooth abscess [Not Recovered/Not Resolved]
  - Tuberculosis [Not Recovered/Not Resolved]
  - Upper respiratory tract infection [Not Recovered/Not Resolved]
  - Weight decreased [Not Recovered/Not Resolved]
  - Abdominal pain [Not Recovered/Not Resolved]
  - Arthralgia [Not Recovered/Not Resolved]
  - Blood pressure fluctuation [Not Recovered/Not Resolved]
  - Bronchitis viral [Not Recovered/Not Resolved]
  - Bronchitis [Not Recovered/Not Resolved]
  - Cough [Not Recovered/Not Resolved]
  - Helicobacter infection [Not Recovered/Not Resolved]
  - Inflammation [Not Recovered/Not Resolved]
  - Lower respiratory tract infection [Not Recovered/Not Resolved]
  - Nasopharyngitis [Not Recovered/Not Resolved]
  - Rhinorrhoea [Not Recovered/Not Resolved]
  - Weight increased [Not Recovered/Not Resolved]
  - Tooth disorder [Not Recovered/Not Resolved]
